FAERS Safety Report 25080084 (Version 1)
Quarter: 2025Q1

REPORT INFORMATION
  Report Type: Spontaneous
  Country: CN (occurrence: CN)
  Receive Date: 20250314
  Receipt Date: 20250314
  Transmission Date: 20250408
  Serious: Yes (Hospitalization, Other)
  Sender: NOVARTIS
  Company Number: CN-002147023-NVSC2025CN042392

PATIENT
  Age: 48 Year
  Sex: Female

DRUGS (4)
  1. SECUKINUMAB [Suspect]
     Active Substance: SECUKINUMAB
     Indication: Psoriasis
     Route: 065
     Dates: start: 201907
  2. SECUKINUMAB [Suspect]
     Active Substance: SECUKINUMAB
     Route: 065
     Dates: start: 2020
  3. SECUKINUMAB [Suspect]
     Active Substance: SECUKINUMAB
     Route: 065
     Dates: start: 2023
  4. SECUKINUMAB [Suspect]
     Active Substance: SECUKINUMAB
     Route: 065
     Dates: start: 202402, end: 20240305

REACTIONS (5)
  - Atypical mycobacterial infection [Recovered/Resolved]
  - Atypical mycobacterial infection [Recovering/Resolving]
  - Lung disorder [Recovering/Resolving]
  - Bronchiectasis [Recovering/Resolving]
  - Off label use [Unknown]

NARRATIVE: CASE EVENT DATE: 20200501
